FAERS Safety Report 6168138-9 (Version None)
Quarter: 2009Q2

REPORT INFORMATION
  Report Type: 
  Country: None (occurrence: None)
  Receive Date: 20090421
  Receipt Date: 20090421
  Transmission Date: 20091009
  Serious: Yes (Other)
  Sender: FDA-Public Use
  Company Number: None

PATIENT
  Age: 67 Year
  Sex: Female
  Weight: 51.7101 kg

DRUGS (1)
  1. ADVAIR DISKUS 500/50 [Suspect]
     Indication: CHRONIC OBSTRUCTIVE PULMONARY DISEASE
     Dosage: 500/50 AM + PM
     Dates: start: 20080401, end: 20090421

REACTIONS (5)
  - AGEUSIA [None]
  - CANDIDIASIS [None]
  - GASTRIC DISORDER [None]
  - MUSCLE SPASMS [None]
  - PNEUMONIA [None]
